FAERS Safety Report 13391044 (Version 1)
Quarter: 2017Q1

REPORT INFORMATION
  Report Type: Spontaneous
  Country: JP (occurrence: JP)
  Receive Date: 20170331
  Receipt Date: 20170331
  Transmission Date: 20170429
  Serious: Yes (Other)
  Sender: FDA-Public Use
  Company Number: JP-GLAXOSMITHKLINE-JP2017JPN043784

PATIENT
  Sex: Male

DRUGS (2)
  1. CIGANON CLEAR1 [Suspect]
     Active Substance: NICOTINE
     Indication: SMOKING CESSATION THERAPY
     Dosage: 1 DF, QD
     Route: 050
  2. QUETIAPINE FUMARATE. [Concomitant]
     Active Substance: QUETIAPINE FUMARATE
     Indication: SCHIZOPHRENIA
     Dosage: UNK

REACTIONS (6)
  - Dry eye [Not Recovered/Not Resolved]
  - Hypoaesthesia [Not Recovered/Not Resolved]
  - Stomatitis [Not Recovered/Not Resolved]
  - Injury corneal [Not Recovered/Not Resolved]
  - Glaucoma [Not Recovered/Not Resolved]
  - Intraocular pressure increased [Not Recovered/Not Resolved]
